FAERS Safety Report 8577632-2 (Version None)
Quarter: 2012Q3

REPORT INFORMATION
  Report Type: 
  Country: None (occurrence: None)
  Receive Date: 20120807
  Receipt Date: 20120730
  Transmission Date: 20120928
  Serious: Yes (Hospitalization, Congenital Anomaly, Other)
  Sender: FDA-Public Use
  Company Number: US-PFIZER INC-2011262821

PATIENT
  Age: 4 Day
  Sex: Male
  Weight: 3.32 kg

DRUGS (8)
  1. SERTRALINE [Concomitant]
     Dosage: 100 MG, 1X/DAY
     Route: 064
     Dates: start: 20090729
  2. ZOLOFT [Suspect]
     Indication: ANXIETY
     Dosage: 75 MG, 1X/DAY
     Route: 064
     Dates: start: 20090318
  3. ZOLOFT [Suspect]
     Indication: DEPRESSION
     Dosage: 100 MG, 1X/DAY
     Route: 064
     Dates: start: 20090701, end: 20091101
  4. ZOLOFT [Suspect]
     Dosage: 50 MG, 1X/DAY
     Route: 064
     Dates: start: 20100422
  5. SERTRALINE [Concomitant]
     Dosage: 50 MG, 1X/DAY
     Route: 064
     Dates: start: 20071031
  6. SERTRALINE [Concomitant]
     Dosage: ONE AND HALF TABLET PER ORAL ONCE DAILY
     Route: 064
     Dates: start: 20091002
  7. SERTRALINE [Concomitant]
     Dosage: 75 MG, 1X/DAY
     Route: 064
     Dates: start: 20081119
  8. MULTI-VITAMINS [Concomitant]
     Dosage: UNK
     Route: 064

REACTIONS (23)
  - CARDIOMEGALY [None]
  - CONGENITAL CORONARY ARTERY MALFORMATION [None]
  - TRANSPOSITION OF THE GREAT VESSELS [None]
  - PULMONARY VALVE INCOMPETENCE [None]
  - MATERNAL EXPOSURE TIMING UNSPECIFIED [None]
  - DOUBLE OUTLET RIGHT VENTRICLE [None]
  - CONGENITAL PULMONARY ARTERY ANOMALY [None]
  - AORTIC VALVE INCOMPETENCE [None]
  - MITRAL VALVE INCOMPETENCE [None]
  - COARCTATION OF THE AORTA [None]
  - ATRIAL SEPTAL DEFECT [None]
  - PATENT DUCTUS ARTERIOSUS [None]
  - CONGENITAL PULMONARY HYPERTENSION [None]
  - CONGENITAL PULMONARY VALVE DISORDER [None]
  - VENTRICULAR SEPTAL DEFECT [None]
  - AORTA HYPOPLASIA [None]
  - FEEDING DISORDER NEONATAL [None]
  - UNIVENTRICULAR HEART [None]
  - JAUNDICE NEONATAL [None]
  - PREMATURE BABY [None]
  - TRICUSPID VALVE INCOMPETENCE [None]
  - AORTIC STENOSIS [None]
  - CARDIAC FAILURE CONGESTIVE [None]
